FAERS Safety Report 7549454-2 (Version None)
Quarter: 2011Q2

REPORT INFORMATION
  Report Type: 
  Country: None (occurrence: None)
  Receive Date: 20110615
  Receipt Date: 20041014
  Transmission Date: 20111010
  Serious: Yes (Hospitalization)
  Sender: FDA-Public Use
  Company Number: PHFR2004GB03300

PATIENT
  Sex: Male
  Weight: 80 kg

DRUGS (3)
  1. CLOZAPINE [Suspect]
     Indication: SCHIZOPHRENIA
     Dosage: 400 MG, QD
     Route: 048
     Dates: start: 20040608
  2. DEPAKOTE [Concomitant]
  3. ATORVASTATIN [Concomitant]

REACTIONS (3)
  - DIARRHOEA [None]
  - PYREXIA [None]
  - CLOSTRIDIAL INFECTION [None]
